FAERS Safety Report 9744156 (Version 2)
Quarter: 2014Q1

REPORT INFORMATION
  Report Type: Spontaneous
  Country: US (occurrence: US)
  Receive Date: 20131210
  Receipt Date: 20140124
  Transmission Date: 20141002
  Serious: Yes (Hospitalization)
  Sender: FDA-Public Use
  Company Number: US-BAYER-2013-150597

PATIENT
  Age: 28 Year
  Sex: Female
  Weight: 81.63 kg

DRUGS (7)
  1. YAZ [Suspect]
     Indication: ACNE
     Dosage: UNK
     Dates: start: 201101, end: 201105
  2. YASMIN [Suspect]
     Indication: ACNE
     Dosage: UNK
     Dates: start: 2006, end: 2009
  3. FOLIC ACID [Concomitant]
     Dosage: UNK
     Dates: start: 20110518
  4. VITAMIN D [Concomitant]
     Dosage: 2000 U, UNK
     Dates: start: 20110518
  5. VENTOLIN [Concomitant]
     Dosage: UNK
     Dates: start: 20110518
  6. MOTRIN [Concomitant]
     Dosage: UNK
     Dates: start: 20110518
  7. ROLAIDS [CALCIUM CARBONATE,MAGNESIUM HYDROXIDE] [Concomitant]
     Dosage: UNK
     Dates: start: 20110518

REACTIONS (6)
  - Pain [None]
  - Deep vein thrombosis [None]
  - Pulmonary embolism [None]
  - Scar [None]
  - Mobility decreased [None]
  - Pain [None]
